FAERS Safety Report 4554475-8 (Version None)
Quarter: 2005Q1

REPORT INFORMATION
  Report Type: 
  Country: None (occurrence: None)
  Receive Date: 20050107
  Receipt Date: 20041227
  Transmission Date: 20050727
  Serious: Yes (Death)
  Sender: FDA-Public Use
  Company Number: 003-021

PATIENT
  Age: 55 Year
  Sex: Male

DRUGS (2)
  1. CROFAB [Suspect]
     Indication: SNAKE BITE
     Dosage: 14 VIALS IV ONCE
     Route: 042
     Dates: start: 20041221
  2. NOREPINEPHRINE AND DOPAMINE [Concomitant]

REACTIONS (1)
  - MULTI-ORGAN FAILURE [None]
